FAERS Safety Report 7867324 (Version 5)
Quarter: 2013Q3

REPORT INFORMATION
  Report Type: Spontaneous
  Country: US (occurrence: US)
  Receive Date: 20110323
  Receipt Date: 20130730
  Transmission Date: 20140515
  Serious: Yes (Hospitalization, Other)
  Sender: FDA-Public Use
  Company Number: US-US-EMD SERONO, INC.-7048259

PATIENT
  Age: 42 Year
  Sex: Female
  Weight: 110 kg

DRUGS (28)
  1. REBIF [Suspect]
     Indication: MULTIPLE SCLEROSIS
     Route: 058
     Dates: start: 20071217
  2. NOVOLOG [Concomitant]
     Indication: PRODUCT USED FOR UNKNOWN INDICATION
  3. TOPIRAMATE [Concomitant]
     Indication: HEADACHE
  4. DETROL LA [Concomitant]
     Indication: URINARY INCONTINENCE
     Dosage: AT BEDTIME
     Route: 048
  5. CYMBALTA [Concomitant]
     Indication: DEPRESSION
     Dosage: AT BEDTIME
     Route: 048
  6. KEPPRA [Concomitant]
     Indication: EPILEPSY
  7. ANTIVERT                           /00007101/ [Concomitant]
     Indication: DIZZINESS
  8. NYSTATIN [Concomitant]
     Indication: PRODUCT USED FOR UNKNOWN INDICATION
     Route: 061
  9. ELAVIL                             /00002202/ [Concomitant]
     Indication: SLEEP DISORDER
     Dosage: AT BEDTIME
     Route: 048
  10. TEGRETOL [Concomitant]
     Indication: EPILEPSY
     Route: 048
  11. TEGRETOL [Concomitant]
     Indication: NEURALGIA
  12. NEXIUM                             /01479302/ [Concomitant]
     Indication: GASTROOESOPHAGEAL REFLUX DISEASE
     Dosage: AT BEDTIME
     Route: 048
  13. NEURONTIN [Concomitant]
     Indication: CONVULSION
  14. NEURONTIN [Concomitant]
     Indication: NEURALGIA
  15. SYNTHROID [Concomitant]
     Indication: THYROID DISORDER
     Dosage: IN THE AM
     Route: 048
  16. SEROQUEL                           /01270901/ [Concomitant]
     Indication: DEPRESSION
     Dosage: AT BEDTIME
     Route: 048
  17. CRESTOR                            /01588601/ [Concomitant]
     Indication: BLOOD CHOLESTEROL INCREASED
     Dosage: AT BEDTIME
     Route: 048
  18. ATARAX                             /00058401/ [Concomitant]
     Indication: ANXIETY
     Route: 048
  19. VALIUM                             /00017001/ [Concomitant]
     Indication: ANXIETY
     Route: 048
  20. AMBIEN [Concomitant]
     Indication: SLEEP DISORDER
     Dosage: AT BEDTIME
     Route: 048
  21. DEMEROL [Concomitant]
     Indication: FIBROMYALGIA
     Route: 048
  22. ZOFRAN                             /00955301/ [Concomitant]
     Indication: NAUSEA
     Dosage: ONCE EVERY FOUR HOURS
  23. COMPAZINE                          /00013302/ [Concomitant]
     Indication: MIGRAINE
     Route: 048
  24. BENADRYL                           /00000402/ [Concomitant]
     Indication: MIGRAINE
  25. COLACE [Concomitant]
     Indication: CONSTIPATION
  26. ATENOLOL [Concomitant]
     Indication: PRODUCT USED FOR UNKNOWN INDICATION
  27. ATIVA [Concomitant]
     Indication: PRODUCT USED FOR UNKNOWN INDICATION
  28. LISINOPRIL [Concomitant]
     Indication: PRODUCT USED FOR UNKNOWN INDICATION

REACTIONS (10)
  - Staphylococcal infection [Unknown]
  - Dysarthria [Recovered/Resolved]
  - Paraesthesia oral [Recovered/Resolved]
  - Blood glucose increased [Unknown]
  - Multiple sclerosis relapse [Unknown]
  - Hyperaesthesia [Unknown]
  - Stress [Unknown]
  - Drug hypersensitivity [Not Recovered/Not Resolved]
  - Injection site reaction [Unknown]
  - Influenza like illness [Unknown]
